FAERS Safety Report 5491389-3 (Version None)
Quarter: 2007Q4

REPORT INFORMATION
  Report Type: 
  Country: None (occurrence: None)
  Receive Date: 20071018
  Receipt Date: 20071009
  Transmission Date: 20080405
  Serious: Yes (Death)
  Sender: FDA-Public Use
  Company Number: GXKR2007JP08701

PATIENT
  Age: 71 Year
  Sex: Male

DRUGS (3)
  1. CARBOPLATIN [Suspect]
     Indication: ADENOCARCINOMA
  2. DOCETAXEL [Suspect]
     Indication: ADENOCARCINOMA
  3. CORTICOSTEROIDS (NO INGREDIENTS/SUBSTANCES) [Concomitant]

REACTIONS (6)
  - ALOPECIA [None]
  - BONE MARROW FAILURE [None]
  - CARDIO-RESPIRATORY ARREST [None]
  - CHEST PAIN [None]
  - DRUG HYPERSENSITIVITY [None]
  - ENCEPHALOPATHY [None]
